FAERS Safety Report 24652824 (Version 8)
Quarter: 2025Q1

REPORT INFORMATION
  Report Type: Report from Study
  Country: MX (occurrence: MX)
  Receive Date: 20241122
  Receipt Date: 20250319
  Transmission Date: 20250409
  Serious: Yes (Hospitalization)
  Sender: NOVARTIS
  Company Number: MX-002147023-NVSC2024MX223325

PATIENT
  Age: 46 Year
  Sex: Female
  Weight: 58 kg

DRUGS (10)
  1. KISQALI [Suspect]
     Active Substance: RIBOCICLIB
     Indication: Breast cancer
     Dosage: 1 DOSAGE FORM, TID (200 MG)
     Route: 048
     Dates: start: 20240923
  2. KISQALI [Suspect]
     Active Substance: RIBOCICLIB
     Dosage: 1 DOSAGE FORM, TID (200 MG)
     Route: 048
     Dates: start: 202409
  3. KISQALI [Suspect]
     Active Substance: RIBOCICLIB
     Route: 048
     Dates: end: 20250120
  4. KISQALI [Suspect]
     Active Substance: RIBOCICLIB
     Dosage: 2 DOSAGE FORM, QD
     Route: 048
     Dates: start: 20250121
  5. KISQALI [Suspect]
     Active Substance: RIBOCICLIB
     Dosage: 1 DOSAGE FORM OF 200 MG, QD
     Route: 048
     Dates: start: 202410
  6. KISQALI [Suspect]
     Active Substance: RIBOCICLIB
     Dosage: 3 OF 200 MG, QD
     Route: 048
     Dates: end: 20250203
  7. KISQALI [Suspect]
     Active Substance: RIBOCICLIB
     Dosage: 2 OF 200 MG, QD
     Route: 048
     Dates: start: 20250204
  8. LETROZOLE [Suspect]
     Active Substance: LETROZOLE
     Indication: Breast cancer
     Dosage: 1 DOSAGE FORM, QD (AT NIGHT)
     Route: 048
  9. LETROZOLE [Suspect]
     Active Substance: LETROZOLE
     Dosage: 1 DOSAGE FORM, QD
     Route: 048
     Dates: start: 20240923
  10. LETROZOLE [Suspect]
     Active Substance: LETROZOLE
     Dosage: 1 DOSAGE FORM (1 OF 2.5 MG), QD
     Route: 048
     Dates: start: 20240924

REACTIONS (20)
  - Nausea [Recovered/Resolved]
  - Malaise [Not Recovered/Not Resolved]
  - Breast pain [Not Recovered/Not Resolved]
  - Pain [Not Recovered/Not Resolved]
  - Skin burning sensation [Recovering/Resolving]
  - Skin lesion [Recovered/Resolved with Sequelae]
  - Blister [Recovering/Resolving]
  - Pain of skin [Recovering/Resolving]
  - Dry skin [Not Recovered/Not Resolved]
  - Pruritus [Not Recovered/Not Resolved]
  - Insomnia [Recovered/Resolved]
  - Oropharyngeal discomfort [Not Recovered/Not Resolved]
  - Weight decreased [Recovered/Resolved]
  - Hypersensitivity [Recovering/Resolving]
  - Scar [Unknown]
  - Discomfort [Unknown]
  - Anaemia [Not Recovered/Not Resolved]
  - Skin discolouration [Not Recovered/Not Resolved]
  - Off label use [Unknown]
  - Urticaria [Not Recovered/Not Resolved]

NARRATIVE: CASE EVENT DATE: 20240901
